FAERS Safety Report 22090755 (Version 3)
Quarter: 2023Q2

REPORT INFORMATION
  Report Type: Spontaneous
  Country: US (occurrence: US)
  Receive Date: 20230313
  Receipt Date: 20230426
  Transmission Date: 20230722
  Serious: No
  Sender: FDA-Public Use
  Company Number: US-Blueprint Medicines Corporation-954

PATIENT
  Sex: Male

DRUGS (1)
  1. AYVAKIT [Suspect]
     Active Substance: AVAPRITINIB
     Indication: Gastrointestinal stromal tumour
     Route: 065
     Dates: start: 20230223

REACTIONS (5)
  - Blood bilirubin increased [Unknown]
  - Jaundice [Unknown]
  - Periorbital swelling [Unknown]
  - Eye irritation [Recovered/Resolved]
  - Dizziness [Unknown]
